FAERS Safety Report 17403446 (Version 2)
Quarter: 2020Q2

REPORT INFORMATION
  Report Type: Spontaneous
  Country: US (occurrence: US)
  Receive Date: 20200211
  Receipt Date: 20200409
  Transmission Date: 20200713
  Serious: Yes (Other)
  Sender: FDA-Public Use
  Company Number: US-JNJFOC-20200204434

PATIENT
  Age: 69 Year
  Sex: Female
  Weight: 61.29 kg

DRUGS (5)
  1. SPRAVATO [Suspect]
     Active Substance: ESKETAMINE
     Indication: DEPRESSION
     Dates: start: 20190819
  2. QUETIAPINE. [Concomitant]
     Active Substance: QUETIAPINE
     Indication: MAJOR DEPRESSION
     Dosage: 25 MG; 2-3 TABLETS
  3. ABILIFY [Concomitant]
     Active Substance: ARIPIPRAZOLE
     Indication: MAJOR DEPRESSION
     Dosage: DOSE 10MG 1/4 TABLET
  4. SPRAVATO [Concomitant]
     Active Substance: ESKETAMINE
  5. ALPRAZOLAM. [Concomitant]
     Active Substance: ALPRAZOLAM
     Indication: GENERALISED ANXIETY DISORDER

REACTIONS (1)
  - Depression suicidal [Recovered/Resolved]

NARRATIVE: CASE EVENT DATE: 20191231
